FAERS Safety Report 8124399-8 (Version None)
Quarter: 2012Q1

REPORT INFORMATION
  Report Type: 
  Country: None (occurrence: None)
  Receive Date: 20120209
  Receipt Date: 20120201
  Transmission Date: 20120608
  Serious: Yes (Other)
  Sender: FDA-Public Use
  Company Number: US-BAYER-2011-062975

PATIENT
  Age: 46 Year
  Sex: Female
  Weight: 51.247 kg

DRUGS (1)
  1. YASMIN [Suspect]
     Indication: ACNE
     Dosage: UNK
     Dates: start: 20080919, end: 20090303

REACTIONS (5)
  - CHOLECYSTITIS [None]
  - WEIGHT DECREASED [None]
  - QUALITY OF LIFE DECREASED [None]
  - GALLBLADDER DISORDER [None]
  - ABDOMINAL PAIN [None]
